FAERS Safety Report 6774764-6 (Version None)
Quarter: 2010Q2

REPORT INFORMATION
  Report Type: 
  Country: None (occurrence: None)
  Receive Date: 20100617
  Receipt Date: 20100610
  Transmission Date: 20101027
  Serious: Yes (Other)
  Sender: FDA-Public Use
  Company Number: FI-ROCHE-704764

PATIENT
  Sex: Female

DRUGS (6)
  1. ROACTEMRA [Suspect]
     Indication: RHEUMATOID ARTHRITIS
     Dosage: FORM: INFUSION.
     Route: 042
     Dates: start: 20090801
  2. ROACTEMRA [Suspect]
     Route: 042
  3. PREDNISOLONE [Concomitant]
     Indication: RHEUMATOID ARTHRITIS
  4. OMEPRAZOLE [Concomitant]
  5. CALCICHEW D3 [Concomitant]
     Dosage: DRUG NAME: CALCICHEW D-3 (D-VITAMIN SUPPLEMENT)
     Route: 048
  6. OPTINATE [Concomitant]

REACTIONS (2)
  - HUMORAL IMMUNE DEFECT [None]
  - INFECTION [None]
